FAERS Safety Report 17372131 (Version 1)
Quarter: 2020Q1

REPORT INFORMATION
  Report Type: Spontaneous
  Country: DE (occurrence: DE)
  Receive Date: 20200205
  Receipt Date: 20200205
  Transmission Date: 20200409
  Serious: Yes (Death, Hospitalization, Other)
  Sender: FDA-Public Use
  Company Number: DE-CELGENEUS-DEU-20200200634

PATIENT
  Age: 61 Year
  Sex: Female
  Weight: 68 kg

DRUGS (1)
  1. ABRAXANE [Suspect]
     Active Substance: PACLITAXEL
     Indication: PRODUCT USED FOR UNKNOWN INDICATION
     Dosage: 300MG/50ML
     Route: 042
     Dates: start: 20191202, end: 20200116

REACTIONS (2)
  - Cerebellar artery occlusion [Fatal]
  - Ischaemic cerebral infarction [Fatal]

NARRATIVE: CASE EVENT DATE: 20200104
